FAERS Safety Report 8611997-8 (Version None)
Quarter: 2012Q3

REPORT INFORMATION
  Report Type: 
  Country: None (occurrence: None)
  Receive Date: 20120822
  Receipt Date: 20120511
  Transmission Date: 20120928
  Serious: Yes (Death)
  Sender: FDA-Public Use
  Company Number: US-GLAXOSMITHKLINE-A0977950A

PATIENT
  Sex: Male

DRUGS (5)
  1. VOTRIENT [Suspect]
     Indication: PRODUCT USED FOR UNKNOWN INDICATION
     Dosage: 800MG PER DAY
     Route: 048
  2. TRAZODONE HYDROCHLORIDE [Concomitant]
     Dosage: 50MG UNKNOWN
     Route: 048
  3. OMEPRAZOLE [Concomitant]
     Dosage: 10MG UNKNOWN
     Route: 048
  4. DEXAMETHASONE [Concomitant]
     Dosage: 1MG UNKNOWN
     Route: 048
  5. IBUPROFEN [Concomitant]
     Dosage: 200MG UNKNOWN

REACTIONS (2)
  - INSOMNIA [None]
  - DEATH [None]
